FAERS Safety Report 9176801 (Version 2)
Quarter: 2013Q2

REPORT INFORMATION
  Report Type: Spontaneous
  Country: US (occurrence: US)
  Receive Date: 20120531
  Receipt Date: 20130529
  Transmission Date: 20140414
  Serious: Yes (Life-Threatening, Hospitalization, Other)
  Sender: FDA-Public Use
  Company Number: US201201007361

PATIENT
  Age: 60 Year
  Sex: Male

DRUGS (14)
  1. BYETTA PEN DISPOSABLE [Suspect]
     Dates: start: 200710, end: 201111
  2. EXENATIDE UNK STRENGTH PEN, DISPOSABLE DEVICE [Concomitant]
  3. NIFEDIPINE [Concomitant]
  4. METFORMIN [Concomitant]
  5. PRAVACHOL [Concomitant]
  6. ASPIRIN [Concomitant]
  7. FLUOXETINE [Concomitant]
  8. GLIMEPIRIDE [Concomitant]
  9. ATENOLOL [Concomitant]
  10. LISINOPRIL [Concomitant]
  11. HYDRALAZINE [Concomitant]
  12. DIPRIVAN [Concomitant]
     Indication: CONVULSION
  13. ATIVAN [Concomitant]
  14. DILANTIN [Concomitant]
     Indication: CONVULSION

REACTIONS (5)
  - Respiratory failure [Unknown]
  - Convulsion [Unknown]
  - Diabetic ketoacidosis [Unknown]
  - Pancreatitis acute [Unknown]
  - Renal failure acute [Unknown]
